FAERS Safety Report 14039348 (Version 1)
Quarter: 2017Q4

REPORT INFORMATION
  Report Type: Spontaneous
  Country: SE (occurrence: SE)
  Receive Date: 20171004
  Receipt Date: 20171004
  Transmission Date: 20180321
  Serious: Yes (Hospitalization)
  Sender: FDA-Public Use
  Company Number: SE-PFIZER INC-2017423194

PATIENT
  Age: 89 Year
  Sex: Male

DRUGS (3)
  1. DALACIN [Suspect]
     Active Substance: CLINDAMYCIN
     Indication: ERYSIPELAS
     Dosage: UNK
     Route: 042
     Dates: start: 20170813, end: 20170819
  2. ALVEDON [Concomitant]
     Active Substance: ACETAMINOPHEN
     Dosage: UNK
  3. OXYNORM [Concomitant]
     Active Substance: OXYCODONE HYDROCHLORIDE
     Dosage: UNK

REACTIONS (3)
  - Oral discomfort [Unknown]
  - Rash pruritic [Unknown]
  - Oral pruritus [Unknown]

NARRATIVE: CASE EVENT DATE: 20170819
